FAERS Safety Report 7683731-X (Version None)
Quarter: 2011Q3

REPORT INFORMATION
  Report Type: 
  Country: None (occurrence: None)
  Receive Date: 20110815
  Receipt Date: 20110804
  Transmission Date: 20111222
  Serious: Yes (Other)
  Sender: FDA-Public Use
  Company Number: TR-JNJFOC-20110803512

PATIENT
  Age: 52 Year
  Sex: Female

DRUGS (2)
  1. REMICADE [Suspect]
     Route: 042
     Dates: start: 20110719
  2. REMICADE [Suspect]
     Indication: RHEUMATOID ARTHRITIS
     Route: 042
     Dates: start: 20110804

REACTIONS (8)
  - NAUSEA [None]
  - INFUSION RELATED REACTION [None]
  - VOMITING [None]
  - CHEST DISCOMFORT [None]
  - CHOLELITHIASIS [None]
  - HEADACHE [None]
  - PAIN [None]
  - FATIGUE [None]
